FAERS Safety Report 8808914 (Version 1)
Quarter: 2012Q4

REPORT INFORMATION
  Report Type: 
  Country: US (occurrence: US)
  Receive Date: 20120926
  Receipt Date: 20120926
  Transmission Date: 20130627
  Serious: Yes (Other)
  Sender: FDA-Public Use
  Company Number: US-SHIRE-ALL1-2012-04500

PATIENT
  Sex: Male
  Weight: 52.15 kg

DRUGS (5)
  1. VYVANSE [Suspect]
     Indication: ATTENTION DEFICIT/HYPERACTIVITY DISORDER
     Dosage: 70 mg, 1x/day:qd
     Route: 048
     Dates: start: 20110929, end: 201204
  2. VYVANSE [Suspect]
     Dosage: 40 mg, 1x/day:qd
     Route: 048
     Dates: start: 201009, end: 20110929
  3. VYVANSE [Suspect]
     Dosage: 50 mg, 1x/day:qd
     Route: 048
     Dates: start: 201204, end: 201206
  4. VYVANSE [Suspect]
     Dosage: 40 mg, 1x/day:qd
     Route: 048
     Dates: start: 201208, end: 20120904
  5. INTUNIV [Concomitant]
     Indication: ATTENTION DEFICIT/HYPERACTIVITY DISORDER
     Dosage: 4 mg, 1x/day:qd
     Route: 048
     Dates: start: 20100929, end: 20120312

REACTIONS (4)
  - Depressive symptom [Recovered/Resolved]
  - Disturbance in attention [Recovered/Resolved]
  - Mood altered [Recovered/Resolved]
  - Anxiety [Unknown]
